FAERS Safety Report 4768350-7 (Version None)
Quarter: 2005Q3

REPORT INFORMATION
  Report Type: 
  Country: None (occurrence: None)
  Receive Date: 20050914
  Receipt Date: 20050902
  Transmission Date: 20060218
  Serious: Yes (Hospitalization)
  Sender: FDA-Public Use
  Company Number: CA-JNJFOC-20050901355

PATIENT
  Sex: Female
  Weight: 44.9 kg

DRUGS (19)
  1. REMICADE [Suspect]
     Indication: ANKYLOSING SPONDYLITIS
     Route: 042
  2. LUVOX [Concomitant]
     Indication: ANXIETY
     Route: 048
  3. GLUCOPHAGE [Concomitant]
     Route: 048
  4. ESTRADIOL [Concomitant]
     Indication: MENOPAUSE
     Route: 048
  5. METHOTREXATE [Concomitant]
     Indication: ANKYLOSING SPONDYLITIS
     Route: 048
  6. IBUPROFEN [Concomitant]
  7. PROVERA [Concomitant]
     Indication: MENOPAUSE
     Route: 048
  8. ELAVIL [Concomitant]
     Indication: SLEEP DISORDER THERAPY
     Route: 048
  9. TYLENOL [Concomitant]
  10. TYLENOL [Concomitant]
  11. TYLENOL [Concomitant]
  12. TYLENOL [Concomitant]
  13. TYLENOL [Concomitant]
  14. TYLENOL [Concomitant]
  15. TYLENOL [Concomitant]
  16. TYLENOL [Concomitant]
  17. TYLENOL [Concomitant]
  18. TYLENOL [Concomitant]
  19. TYLENOL [Concomitant]

REACTIONS (2)
  - FALL [None]
  - LOWER LIMB FRACTURE [None]
